FAERS Safety Report 4425709-5 (Version None)
Quarter: 2004Q3

REPORT INFORMATION
  Report Type: 
  Country: None (occurrence: None)
  Receive Date: 20040810
  Receipt Date: 20040726
  Transmission Date: 20050211
  Serious: Yes (Hospitalization)
  Sender: FDA-Public Use
  Company Number: 199680

PATIENT
  Age: 67 Year
  Sex: Female
  Weight: 64.8644 kg

DRUGS (3)
  1. AVONEX [Suspect]
     Indication: MULTIPLE SCLEROSIS
     Dosage: 30 MCG QW IM
     Route: 030
     Dates: start: 20000101, end: 20040201
  2. AVONEX [Suspect]
     Indication: MULTIPLE SCLEROSIS
     Dosage: 30 MCG QW IM
     Route: 030
     Dates: start: 20040201
  3. PAXIL [Concomitant]

REACTIONS (4)
  - INFLUENZA LIKE ILLNESS [None]
  - LOBAR PNEUMONIA [None]
  - SPUTUM ABNORMAL [None]
  - URINARY TRACT INFECTION [None]
